FAERS Safety Report 4596485-0 (Version None)
Quarter: 2005Q1

REPORT INFORMATION
  Report Type: 
  Country: None (occurrence: None)
  Receive Date: 20050302
  Receipt Date: 20050218
  Transmission Date: 20050727
  Serious: Yes (Hospitalization)
  Sender: FDA-Public Use
  Company Number: FR-SANOFI-SYNTHELABO-A02200500429

PATIENT
  Age: 75 Year
  Sex: Female

DRUGS (12)
  1. EFFERALGAN [Concomitant]
     Route: 048
     Dates: end: 20041206
  2. PIASCLEDINE [Concomitant]
     Dosage: UNK
     Route: 048
     Dates: end: 20041206
  3. LEXOMIL [Concomitant]
     Route: 048
     Dates: end: 20041206
  4. STILNOX [Concomitant]
     Route: 048
     Dates: end: 20041206
  5. TANAKAN [Concomitant]
     Route: 048
     Dates: end: 20041206
  6. SOPROL [Suspect]
     Indication: HYPERTENSION
     Dosage: UNK
     Route: 048
     Dates: end: 20041206
  7. PROZAC [Suspect]
     Indication: DYSTHYMIC DISORDER
     Route: 048
     Dates: end: 20041206
  8. FELDENE [Suspect]
     Indication: BACK PAIN
     Dosage: UNK
     Route: 030
     Dates: start: 20041202, end: 20041206
  9. DIAMICRON [Suspect]
     Indication: DIABETES MELLITUS
     Dosage: UNK
     Route: 048
     Dates: end: 20041206
  10. PLAVIX [Suspect]
     Indication: PROPHYLAXIS
     Route: 048
     Dates: end: 20041206
  11. ZOCOR [Concomitant]
     Route: 048
     Dates: end: 20041206
  12. CAPTEA [Suspect]
     Indication: HYPERTENSION
     Route: 048
     Dates: end: 20041206

REACTIONS (2)
  - HYPOKALAEMIA [None]
  - HYPONATRAEMIA [None]
